FAERS Safety Report 5897587-9 (Version None)
Quarter: 2008Q3

REPORT INFORMATION
  Report Type: 
  Country: None (occurrence: None)
  Receive Date: 20080829
  Receipt Date: 20080529
  Transmission Date: 20090109
  Serious: Yes (Other)
  Sender: FDA-Public Use
  Company Number: PHEH2008US04981

PATIENT
  Sex: Male

DRUGS (1)
  1. EXJADE [Suspect]
     Dates: start: 20080501

REACTIONS (3)
  - DIARRHOEA [None]
  - RASH ERYTHEMATOUS [None]
  - SWELLING FACE [None]
